FAERS Safety Report 7724913-8 (Version None)
Quarter: 2011Q3

REPORT INFORMATION
  Report Type: 
  Country: None (occurrence: None)
  Receive Date: 20110901
  Receipt Date: 20110824
  Transmission Date: 20111222
  Serious: Yes (Hospitalization)
  Sender: FDA-Public Use
  Company Number: CN-ABBOTT-11P-035-0802999-00

PATIENT
  Sex: Male

DRUGS (2)
  1. S05985 (PERINDOPRIL ARGININE 5/AMLODIPINE 5) [Concomitant]
     Indication: HYPERTENSION
     Dosage: 5/5 MG
     Route: 048
     Dates: start: 20110201
  2. PERINDOPRIL ERBUMINE [Suspect]
     Indication: HYPERTENSION
     Route: 048

REACTIONS (1)
  - DIAPHRAGMATIC RUPTURE [None]
